FAERS Safety Report 7449531-0 (Version None)
Quarter: 2011Q2

REPORT INFORMATION
  Report Type: 
  Country: None (occurrence: None)
  Receive Date: 20110502
  Receipt Date: 20110425
  Transmission Date: 20111010
  Serious: Yes (Other)
  Sender: FDA-Public Use
  Company Number: US-BAYER-2011-035487

PATIENT
  Age: 28 Year
  Sex: Male

DRUGS (1)
  1. BETASERON [Suspect]
     Indication: MULTIPLE SCLEROSIS
     Dosage: 4 MIU, QOD
     Route: 058
     Dates: start: 20110406, end: 20110425

REACTIONS (9)
  - ERYTHEMA [None]
  - CONTUSION [None]
  - SCREAMING [None]
  - INJECTION SITE RASH [None]
  - ANGER [None]
  - CONVERSION DISORDER [None]
  - FEELING HOT [None]
  - FALL [None]
  - AGGRESSION [None]
